FAERS Safety Report 5722422-9 (Version None)
Quarter: 2008Q2

REPORT INFORMATION
  Report Type: 
  Country: None (occurrence: None)
  Receive Date: 20080429
  Receipt Date: 20080414
  Transmission Date: 20081010
  Serious: Yes (Hospitalization)
  Sender: FDA-Public Use
  Company Number: ES-GENENTECH-259674

PATIENT
  Sex: Male

DRUGS (3)
  1. BEVACIZUMAB [Suspect]
     Indication: COLORECTAL CANCER METASTATIC
     Dosage: 495 MG, Q3W
     Route: 042
     Dates: start: 20080222, end: 20080404
  2. CAPECITABINE [Suspect]
     Indication: COLORECTAL CANCER METASTATIC
     Dosage: 1700 MG, QD
     Route: 048
     Dates: start: 20080222, end: 20080328
  3. OXALIPLATIN [Suspect]
     Indication: COLORECTAL CANCER METASTATIC
     Dosage: 220 MG, Q3W
     Route: 042
     Dates: start: 20080222, end: 20080314

REACTIONS (1)
  - COGNITIVE DISORDER [None]
